FAERS Safety Report 5327892-6 (Version None)
Quarter: 2007Q2

REPORT INFORMATION
  Report Type: 
  Country: None (occurrence: None)
  Receive Date: 20070517
  Receipt Date: 20070516
  Transmission Date: 20071010
  Serious: Yes (Other)
  Sender: FDA-Public Use
  Company Number: HQWYE498113APR07

PATIENT
  Age: 35 Year
  Sex: Male
  Weight: 79 kg

DRUGS (6)
  1. TIGECYCLINE [Suspect]
     Indication: URINARY TRACT INFECTION
     Route: 042
     Dates: start: 20070406, end: 20070410
  2. TIGECYCLINE [Suspect]
     Indication: KLEBSIELLA INFECTION
  3. TIGECYCLINE [Suspect]
     Indication: PYREXIA
  4. MYCOPHENOLIC ACID [Concomitant]
     Route: 048
     Dates: start: 20070401, end: 20070410
  5. ESOMEPRAZOLE MAGNESIUM [Concomitant]
     Route: 048
     Dates: start: 20070401
  6. TACROLIMUS [Concomitant]
     Route: 048
     Dates: start: 20070401, end: 20070410

REACTIONS (1)
  - INFUSION SITE IRRITATION [None]
